FAERS Safety Report 11513537 (Version 1)
Quarter: 2015Q3

REPORT INFORMATION
  Report Type: Spontaneous
  Country: FR (occurrence: FR)
  Receive Date: 20150916
  Receipt Date: 20150916
  Transmission Date: 20151125
  Serious: Yes (Hospitalization)
  Sender: FDA-Public Use
  Company Number: FR-SA-2015SA139750

PATIENT
  Age: 82 Year
  Sex: Male

DRUGS (11)
  1. IRBESARTAN. [Suspect]
     Active Substance: IRBESARTAN
     Route: 048
     Dates: end: 20150818
  2. LASILIX [Suspect]
     Active Substance: FUROSEMIDE
     Dosage: 125 MG IN MORNING AND 40 MG AT NOON
     Route: 048
     Dates: end: 20150818
  3. COLCHIMAX [Suspect]
     Active Substance: COLCHICINE\DICYCLOMINE HYDROCHLORIDE
     Indication: GOUT
     Route: 048
     Dates: start: 20150727, end: 20150818
  4. BISOPROLOL [Concomitant]
     Active Substance: BISOPROLOL
     Dosage: 10MG?1.0.0
     Route: 048
  5. DOLIPRANE [Concomitant]
     Active Substance: ACETAMINOPHEN
  6. SPIRONOLACTONE. [Suspect]
     Active Substance: SPIRONOLACTONE
     Route: 048
     Dates: end: 20150818
  7. ALLOPURINOL. [Concomitant]
     Active Substance: ALLOPURINOL
     Dosage: 100 MG?1.0.0
     Route: 048
  8. DICLOFENAC [Concomitant]
     Active Substance: DICLOFENAC
  9. DUOPLAVIN [Concomitant]
     Active Substance: ASPIRIN\CLOPIDOGREL
     Dosage: 75/75 MG?1.0.0
     Route: 048
  10. OMEPRAZOLE. [Concomitant]
     Active Substance: OMEPRAZOLE
     Dosage: 20MG?0.0.1
     Route: 048
  11. TIORFAN [Concomitant]
     Active Substance: RACECADOTRIL

REACTIONS (3)
  - Diarrhoea [Recovered/Resolved]
  - Acute kidney injury [Recovered/Resolved]
  - Hyperkalaemia [Recovered/Resolved]

NARRATIVE: CASE EVENT DATE: 201508
